FAERS Safety Report 7638991-8 (Version None)
Quarter: 2011Q3

REPORT INFORMATION
  Report Type: 
  Country: None (occurrence: None)
  Receive Date: 20110727
  Receipt Date: 20110720
  Transmission Date: 20111222
  Serious: No
  Sender: FDA-Public Use
  Company Number: US-PFIZER INC-2011164828

PATIENT
  Sex: Female

DRUGS (2)
  1. PREMPRO [Suspect]
     Dosage: UNK
  2. PREMARIN [Suspect]
     Dosage: UNK
     Route: 067

REACTIONS (3)
  - DRUG INEFFECTIVE [None]
  - VAGINAL ODOUR [None]
  - HEADACHE [None]
